FAERS Safety Report 8008185-5 (Version None)
Quarter: 2011Q4

REPORT INFORMATION
  Report Type: 
  Country: None (occurrence: None)
  Receive Date: 20111227
  Receipt Date: 20111213
  Transmission Date: 20120403
  Serious: Yes (Hospitalization)
  Sender: FDA-Public Use
  Company Number: NL-JNJFOC-20111210944

PATIENT
  Sex: Male
  Weight: 120 kg

DRUGS (15)
  1. VALGANCICLOVIR [Concomitant]
     Route: 065
     Dates: start: 20110531
  2. ALFUZOSIN HCL [Concomitant]
     Route: 065
  3. VINCRISTINE [Suspect]
     Indication: DIFFUSE LARGE B-CELL LYMPHOMA
     Route: 042
     Dates: start: 20110712
  4. MAGNESIUM OXIDE [Concomitant]
     Route: 065
     Dates: start: 20110531
  5. NEUPOGEN [Suspect]
     Indication: DIFFUSE LARGE B-CELL LYMPHOMA
     Route: 058
     Dates: start: 20110601
  6. RITUXIMAB [Suspect]
     Indication: DIFFUSE LARGE B-CELL LYMPHOMA
     Route: 042
     Dates: start: 20110712
  7. PREDNISONE [Suspect]
     Indication: B-CELL LYMPHOMA
     Route: 042
     Dates: start: 20110712
  8. DOXORUBICIN HCL [Suspect]
     Indication: DIFFUSE LARGE B-CELL LYMPHOMA
     Route: 042
     Dates: start: 20110712
  9. CYCLOPHOSPHAMIDE [Suspect]
     Indication: DIFFUSE LARGE B-CELL LYMPHOMA
     Route: 042
     Dates: start: 20110712
  10. GRANISETRON [Concomitant]
     Route: 065
     Dates: start: 20110531
  11. HYDROCHLOROTHIAZIDE [Concomitant]
     Route: 065
  12. PREDNISONE [Suspect]
     Indication: DIFFUSE LARGE B-CELL LYMPHOMA
     Route: 048
     Dates: start: 20110712
  13. PANTOPRAZOLE [Concomitant]
     Route: 065
  14. COTRIM [Concomitant]
     Route: 065
     Dates: start: 20110531
  15. LOSARTAN POTASSIUM [Concomitant]
     Route: 065

REACTIONS (2)
  - CARDIAC FAILURE [None]
  - ATRIAL FIBRILLATION [None]
